FAERS Safety Report 7124051 (Version 2)
Quarter: 2012Q4

REPORT INFORMATION
  Report Type: 
  Country: US (occurrence: US)
  Receive Date: 20090921
  Receipt Date: 20121019
  Transmission Date: 20130627
  Serious: Yes (Other)
  Sender: FDA-Public Use
  Company Number: US-PFIZER INC-2009269196

PATIENT
  Age: 62 Year
  Sex: Female
  Weight: 84 kg

DRUGS (9)
  1. MEDROXYPROGESTERONE ACETATE [Suspect]
     Indication: HORMONE REPLACEMENT THERAPY
     Dosage: UNK
     Route: 048
     Dates: start: 1994, end: 1996
  2. LOTENSIN [Concomitant]
     Indication: HYPERTENSION
     Dosage: 10 mg, 1x/day
     Dates: start: 1993
  3. MAXZIDE [Concomitant]
     Indication: HYPERTENSION
     Dosage: 25 mg, 1x/day
     Dates: start: 1993
  4. LESCOL [Concomitant]
     Indication: BLOOD CHOLESTEROL INCREASED
     Dosage: UNK
     Dates: start: 1998
  5. POTASSIUM CHLORIDE [Concomitant]
     Indication: BLOOD POTASSIUM
     Dosage: UNK
     Dates: start: 1995
  6. PROVERA [Suspect]
     Indication: HORMONE REPLACEMENT THERAPY
     Dosage: UNK
     Route: 048
     Dates: start: 199012, end: 199501
  7. PREMARIN [Suspect]
     Indication: HORMONE REPLACEMENT THERAPY
     Dosage: UNK
     Route: 048
     Dates: start: 199012, end: 199501
  8. PREMPRO [Suspect]
     Indication: HORMONE REPLACEMENT THERAPY
     Dosage: UNK
     Route: 048
     Dates: start: 199612, end: 199912
  9. MEDROXYPROGESTERONE ACETATE [Suspect]
     Indication: HORMONE REPLACEMENT THERAPY
     Dosage: UNK
     Route: 048
     Dates: start: 1991, end: 1999

REACTIONS (1)
  - Breast cancer female [Unknown]
